FAERS Safety Report 20610439 (Version 1)
Quarter: 2022Q1

REPORT INFORMATION
  Report Type: Spontaneous
  Country: US (occurrence: None)
  Receive Date: 20220317
  Receipt Date: 20220317
  Transmission Date: 20220423
  Serious: Yes (Hospitalization)
  Sender: FDA-Public Use
  Company Number: None

PATIENT
  Age: 69 Year
  Sex: Male

DRUGS (1)
  1. SYNVISC [Suspect]
     Active Substance: HYLAN G-F 20
     Indication: Arthralgia
     Dosage: FREQUENCY : WEEKLY;??FREQUENCY ONE INJECTION EVERY WEEK FOR 3 WEEKS ?
     Route: 014
     Dates: start: 202202, end: 20220224

REACTIONS (2)
  - Joint swelling [None]
  - Injection site joint swelling [None]

NARRATIVE: CASE EVENT DATE: 20220304
